FAERS Safety Report 23093653 (Version 2)
Quarter: 2023Q4

REPORT INFORMATION
  Report Type: Spontaneous
  Country: US (occurrence: None)
  Receive Date: 20231023
  Receipt Date: 20231212
  Transmission Date: 20240110
  Serious: No
  Sender: FDA-Public Use
  Company Number: 2023A238935

PATIENT
  Sex: Female

DRUGS (1)
  1. TEZSPIRE [Suspect]
     Active Substance: TEZEPELUMAB-EKKO
     Dates: start: 20231019

REACTIONS (5)
  - Hypersensitivity [Unknown]
  - Pruritus [Unknown]
  - Malaise [Unknown]
  - Oropharyngeal discomfort [Unknown]
  - Cough [Unknown]

NARRATIVE: CASE EVENT DATE: 20231019
